FAERS Safety Report 14820853 (Version 1)
Quarter: 2018Q2

REPORT INFORMATION
  Report Type: Spontaneous
  Country: US (occurrence: US)
  Receive Date: 20180427
  Receipt Date: 20180427
  Transmission Date: 20180711
  Serious: No
  Sender: FDA-Public Use
  Company Number: US-BAUSCH-BL-2017-023664

PATIENT
  Sex: Male

DRUGS (1)
  1. ZYCLARA [Suspect]
     Active Substance: IMIQUIMOD
     Indication: PRECANCEROUS SKIN LESION
     Dosage: APPLIED ON HIS CHEST EVERY NIGHT FOR 2 WEEKS, THEN OFF FOR 2 WEEKS
     Route: 061
     Dates: start: 201707, end: 201707

REACTIONS (4)
  - Application site scab [Not Recovered/Not Resolved]
  - Influenza like illness [Not Recovered/Not Resolved]
  - Application site erythema [Not Recovered/Not Resolved]
  - Application site pruritus [Unknown]

NARRATIVE: CASE EVENT DATE: 201707
